FAERS Safety Report 21154713 (Version 1)
Quarter: 2022Q3

REPORT INFORMATION
  Report Type: Spontaneous
  Country: US (occurrence: None)
  Receive Date: 20220729
  Receipt Date: 20220729
  Transmission Date: 20221026
  Serious: No
  Sender: FDA-Public Use
  Company Number: None

PATIENT
  Age: 57 Year
  Sex: Female
  Weight: 66.6 kg

DRUGS (1)
  1. PAXLOVID [Suspect]
     Active Substance: NIRMATRELVIR\RITONAVIR
     Indication: COVID-19
     Dosage: OTHER QUANTITY : 30 TABLET(S);?FREQUENCY : TWICE A DAY;?
     Route: 048
     Dates: start: 20220727, end: 20220729

REACTIONS (7)
  - Arthralgia [None]
  - Sacral pain [None]
  - Back pain [None]
  - Insomnia [None]
  - Hypokinesia [None]
  - Pain [None]
  - Dysgeusia [None]

NARRATIVE: CASE EVENT DATE: 20220727
